FAERS Safety Report 14666089 (Version 1)
Quarter: 2018Q1

REPORT INFORMATION
  Report Type: Spontaneous
  Country: US (occurrence: US)
  Receive Date: 20180321
  Receipt Date: 20180321
  Transmission Date: 20180509
  Serious: Yes (Life-Threatening, Hospitalization, Other)
  Sender: FDA-Public Use
  Company Number: US-SA-2018SA074909

PATIENT
  Age: 74 Year
  Sex: Male
  Weight: 74.38 kg

DRUGS (3)
  1. XELJANZ [Concomitant]
     Active Substance: TOFACITINIB CITRATE
  2. ARAVA [Suspect]
     Active Substance: LEFLUNOMIDE
     Route: 048
  3. PREDNISONE. [Concomitant]
     Active Substance: PREDNISONE
     Route: 065
     Dates: start: 200307

REACTIONS (7)
  - Superinfection [Unknown]
  - Drug ineffective [Unknown]
  - Bacterial infection [Unknown]
  - Paranasal sinus hypersecretion [Recovering/Resolving]
  - Liver function test increased [Unknown]
  - Fungal infection [Unknown]
  - Drug hypersensitivity [Unknown]

NARRATIVE: CASE EVENT DATE: 2012
